FAERS Safety Report 6917651-2 (Version None)
Quarter: 2010Q3

REPORT INFORMATION
  Report Type: 
  Country: None (occurrence: None)
  Receive Date: 20100810
  Receipt Date: 20100727
  Transmission Date: 20110219
  Serious: Yes (Hospitalization)
  Sender: FDA-Public Use
  Company Number: FR-MYLANLABS-2010S1013455

PATIENT
  Age: 14 Year
  Sex: Female

DRUGS (3)
  1. LOXAPINE [Suspect]
     Indication: PSYCHOTIC DISORDER
     Route: 065
  2. HALOPERIDOL [Suspect]
     Indication: PSYCHOTIC DISORDER
     Route: 065
  3. TROPATEPINE [Concomitant]
     Indication: MUSCLE RIGIDITY
     Route: 065

REACTIONS (1)
  - CATATONIA [None]
